FAERS Safety Report 9647494 (Version 1)
Quarter: 2013Q4

REPORT INFORMATION
  Report Type: Spontaneous
  Country: US (occurrence: US)
  Receive Date: 20131028
  Receipt Date: 20131028
  Transmission Date: 20140711
  Serious: No
  Sender: FDA-Public Use
  Company Number: US-B.I. PHARMACEUTICALS,INC./RIDGEFIELD-2013-BI-32860BP

PATIENT
  Sex: Female
  Weight: 71 kg

DRUGS (5)
  1. SPIRIVA [Suspect]
     Indication: CHRONIC OBSTRUCTIVE PULMONARY DISEASE
     Dosage: 18 MCG
     Route: 055
     Dates: start: 2009
  2. SPIRIVA [Suspect]
     Indication: EMPHYSEMA
  3. COMBIVENT [Suspect]
     Indication: CHRONIC OBSTRUCTIVE PULMONARY DISEASE
     Dosage: STRENGTH: 18 MCG / 103 MCG; DAILY DOSE: 144 MCG / 824 MCG
     Route: 055
     Dates: start: 2004, end: 20130909
  4. COMBIVENT [Suspect]
     Indication: EMPHYSEMA
  5. OXYGEN 2L PRN [Concomitant]
     Dosage: DOSE PER APPLICATION AND DAILY DOSE: 2 L
     Dates: start: 2005

REACTIONS (2)
  - Dyspnoea [Recovered/Resolved]
  - Dyspnoea [Recovered/Resolved]
